FAERS Safety Report 15262956 (Version 1)
Quarter: 2018Q3

REPORT INFORMATION
  Report Type: Spontaneous
  Country: US (occurrence: US)
  Receive Date: 20180810
  Receipt Date: 20180810
  Transmission Date: 20181010
  Serious: Yes (Hospitalization)
  Sender: FDA-Public Use
  Company Number: US-TEVA-2018-US-894981

PATIENT
  Age: 16 Year
  Sex: Male

DRUGS (3)
  1. IMATINIB [Suspect]
     Active Substance: IMATINIB
     Indication: THYMIC CANCER METASTATIC
     Route: 065
  2. PEMETREXED. [Concomitant]
     Active Substance: PEMETREXED
     Indication: THYMIC CANCER METASTATIC
     Dosage: 500 MG/M2 ON DAY 1 OF A 21 DAY CYCLE
     Route: 065
  3. VORINOSTAT [Concomitant]
     Active Substance: VORINOSTAT
     Indication: THYMIC CANCER METASTATIC
     Dosage: 400MG ON DAYS 1?5, 8?12, AND 15?19
     Route: 065

REACTIONS (1)
  - Herpes zoster [Unknown]
